FAERS Safety Report 9869523 (Version 2)
Quarter: 2014Q1

REPORT INFORMATION
  Report Type: Spontaneous
  Country: US (occurrence: US)
  Receive Date: 20140205
  Receipt Date: 20140205
  Transmission Date: 20141002
  Serious: Yes (Other)
  Sender: FDA-Public Use
  Company Number: US-PFIZER INC-2012089692

PATIENT
  Age: 44 Year
  Sex: Female

DRUGS (1)
  1. GEODON [Suspect]
     Dosage: 20 MG, UNK
     Dates: start: 2010, end: 2010

REACTIONS (8)
  - Orthostatic hypotension [Recovered/Resolved]
  - Orthostatic heart rate response increased [Recovered/Resolved]
  - Respiratory disorder [Recovered/Resolved]
  - Oropharyngeal pain [Recovered/Resolved]
  - Chest pain [Recovered/Resolved]
  - Activities of daily living impaired [Recovered/Resolved]
  - Cough [Recovered/Resolved]
  - Nasal congestion [Recovered/Resolved]
